FAERS Safety Report 13607187 (Version 3)
Quarter: 2017Q3

REPORT INFORMATION
  Report Type: Spontaneous
  Country: US (occurrence: US)
  Receive Date: 20170602
  Receipt Date: 20170815
  Transmission Date: 20171127
  Serious: No
  Sender: FDA-Public Use
  Company Number: US-INCYTE CORPORATION-2017IN004092

PATIENT

DRUGS (1)
  1. JAKAFI [Suspect]
     Active Substance: RUXOLITINIB
     Indication: MYELOFIBROSIS
     Dosage: 20 MG, BID
     Route: 048
     Dates: start: 20160818

REACTIONS (4)
  - Erythema [Recovered/Resolved]
  - Wound drainage [Not Recovered/Not Resolved]
  - White blood cell count increased [Unknown]
  - Ingrowing nail [Unknown]

NARRATIVE: CASE EVENT DATE: 20170731
